FAERS Safety Report 13213921 (Version 1)
Quarter: 2017Q1

REPORT INFORMATION
  Report Type: Spontaneous
  Country: CA (occurrence: CA)
  Receive Date: 20170210
  Receipt Date: 20170210
  Transmission Date: 20170428
  Serious: Yes (Other)
  Sender: FDA-Public Use
  Company Number: CA-SA-2017SA020582

PATIENT
  Age: 51 Year
  Sex: Female

DRUGS (11)
  1. METHOTREXATE. [Suspect]
     Active Substance: METHOTREXATE
     Dosage: PARENTERAL
  2. ETANERCEPT [Suspect]
     Active Substance: ETANERCEPT
     Route: 065
  3. HUMIRA [Suspect]
     Active Substance: ADALIMUMAB
     Indication: RHEUMATOID ARTHRITIS
     Dosage: SOLUTION SC, 1 EVERY 2 WEEK
     Route: 058
  4. METHOTREXATE. [Suspect]
     Active Substance: METHOTREXATE
     Route: 058
  5. METHOTREXATE. [Suspect]
     Active Substance: METHOTREXATE
     Route: 048
  6. TOFACITINIB CITRATE [Concomitant]
     Active Substance: TOFACITINIB CITRATE
  7. RITUXAN [Suspect]
     Active Substance: RITUXIMAB
     Dosage: SOLUTION IV
     Route: 042
  8. HYDROXYCHLOROQUINE SULFATE. [Suspect]
     Active Substance: HYDROXYCHLOROQUINE SULFATE
     Route: 065
  9. AZATHIOPRINE. [Suspect]
     Active Substance: AZATHIOPRINE
     Route: 065
  10. ABATACEPT [Suspect]
     Active Substance: ABATACEPT
     Route: 065
  11. LEFLUNOMIDE. [Suspect]
     Active Substance: LEFLUNOMIDE
     Route: 065

REACTIONS (6)
  - Anaphylactic reaction [Unknown]
  - Rash [Unknown]
  - Drug intolerance [Unknown]
  - Drug ineffective [Unknown]
  - Blood cholesterol increased [Unknown]
  - Synovitis [Unknown]
